FAERS Safety Report 14958495 (Version 1)
Quarter: 2018Q2

REPORT INFORMATION
  Report Type: Spontaneous
  Country: IT (occurrence: IT)
  Receive Date: 20180531
  Receipt Date: 20180531
  Transmission Date: 20180711
  Serious: Yes (Other)
  Sender: FDA-Public Use
  Company Number: IT-AUROBINDO-AUR-APL-2018-028157

PATIENT
  Age: 37 Year
  Sex: Female

DRUGS (1)
  1. IBUPROFEN FILM-COATED TABLETS [Suspect]
     Active Substance: IBUPROFEN
     Indication: HEADACHE
     Dosage: 400 MILLIGRAM, ONCE A DAY
     Route: 048
     Dates: start: 20180510, end: 20180510

REACTIONS (2)
  - Urticaria [Recovering/Resolving]
  - Lip oedema [Recovering/Resolving]

NARRATIVE: CASE EVENT DATE: 20180510
